FAERS Safety Report 7355072-1 (Version None)
Quarter: 2011Q1

REPORT INFORMATION
  Report Type: 
  Country: None (occurrence: None)
  Receive Date: 20110316
  Receipt Date: 20110310
  Transmission Date: 20110831
  Serious: No
  Sender: FDA-Public Use
  Company Number: US-PFIZER INC-2011053812

PATIENT
  Sex: Female
  Weight: 67.6 kg

DRUGS (3)
  1. PREMPRO [Suspect]
     Indication: HOT FLUSH
  2. PREMPRO [Suspect]
     Indication: BLOOD OESTROGEN DECREASED
     Dosage: 1.3 MG, 1X/DAY
     Route: 048
     Dates: start: 20110303
  3. PREMPRO [Suspect]
     Indication: MOOD SWINGS

REACTIONS (3)
  - MOOD SWINGS [None]
  - MALAISE [None]
  - BLOOD OESTROGEN DECREASED [None]
